FAERS Safety Report 25301219 (Version 1)
Quarter: 2025Q2

REPORT INFORMATION
  Report Type: Spontaneous
  Country: JP (occurrence: JP)
  Receive Date: 20250512
  Receipt Date: 20250512
  Transmission Date: 20250717
  Serious: Yes (Hospitalization, Other)
  Sender: AMGEN
  Company Number: JP-002147023-NVSJ2024JP001127

PATIENT
  Age: 46 Year
  Sex: Female

DRUGS (2)
  1. AIMOVIG [Suspect]
     Active Substance: ERENUMAB-AOOE
     Indication: Product used for unknown indication
     Route: 065
     Dates: start: 2022
  2. KESIMPTA [Suspect]
     Active Substance: OFATUMUMAB
     Indication: Multiple sclerosis
     Route: 058
     Dates: start: 20221210

REACTIONS (7)
  - Multiple sclerosis relapse [Recovering/Resolving]
  - Movement disorder [Unknown]
  - Optic neuritis [Recovered/Resolved]
  - Colour blindness [Recovered/Resolved]
  - Eye pain [Unknown]
  - Pupillary reflex impaired [Recovering/Resolving]
  - Paranasal sinus mucosal hypertrophy [Not Recovered/Not Resolved]

NARRATIVE: CASE EVENT DATE: 20231101
